FAERS Safety Report 16549021 (Version 2)
Quarter: 2019Q3

REPORT INFORMATION
  Report Type: Spontaneous
  Country: US (occurrence: US)
  Receive Date: 20190709
  Receipt Date: 20190904
  Transmission Date: 20191004
  Serious: No
  Sender: FDA-Public Use
  Company Number: US-EMD SERONO-9102275

PATIENT
  Sex: Male

DRUGS (1)
  1. SEROSTIM [Suspect]
     Active Substance: SOMATROPIN
     Indication: GROWTH HORMONE DEFICIENCY

REACTIONS (6)
  - Skin exfoliation [Unknown]
  - Sexual dysfunction [Unknown]
  - Eye disorder [Unknown]
  - Body fat disorder [Unknown]
  - Adverse drug reaction [Unknown]
  - Nose deformity [Unknown]
